FAERS Safety Report 17159284 (Version 1)
Quarter: 2019Q4

REPORT INFORMATION
  Report Type: Spontaneous
  Country: US (occurrence: US)
  Receive Date: 20191215
  Receipt Date: 20191215
  Transmission Date: 20200122
  Serious: Yes (Hospitalization)
  Sender: FDA-Public Use
  Company Number: None

PATIENT
  Age: 63 Year
  Sex: Female
  Weight: 61.2 kg

DRUGS (5)
  1. RIGOROFENIB [Concomitant]
  2. RIVAROXABAN [Suspect]
     Active Substance: RIVAROXABAN
     Indication: PULMONARY EMBOLISM
     Route: 048
  3. SERTRALINE [Concomitant]
     Active Substance: SERTRALINE HYDROCHLORIDE
  4. ONDANSETRON 4MG Q 8 HOURS PRN [Concomitant]
  5. PROMETHAZINE 12.5MG Q 6 HOURS PRN [Concomitant]

REACTIONS (5)
  - Rectal haemorrhage [None]
  - Condition aggravated [None]
  - Nausea [None]
  - Vaginal haemorrhage [None]
  - Vomiting [None]

NARRATIVE: CASE EVENT DATE: 20160815
